FAERS Safety Report 10734627 (Version 1)
Quarter: 2015Q1

REPORT INFORMATION
  Report Type: Spontaneous
  Country: US (occurrence: US)
  Receive Date: 20150123
  Receipt Date: 20150123
  Transmission Date: 20150721
  Serious: Yes (Other)
  Sender: FDA-Public Use
  Company Number: US-PFIZER INC-2015024953

PATIENT
  Age: 54 Year
  Sex: Female
  Weight: 112 kg

DRUGS (21)
  1. ARGATROBAN. [Suspect]
     Active Substance: ARGATROBAN
     Indication: HEPARIN-INDUCED THROMBOCYTOPENIA
     Dosage: 4.1 MG PER HOUR
  2. EPOGEN [Concomitant]
     Active Substance: ERYTHROPOIETIN
     Dosage: 5000 IU, 3 TIMES WEEKLY
     Route: 058
  3. ARGATROBAN. [Suspect]
     Active Substance: ARGATROBAN
     Indication: PULMONARY EMBOLISM
     Dosage: 0.5 MCG PER KG PER MINUTE WHICH IS 3.3 MG PER HOUR
     Dates: start: 20150118
  4. FAMOTIDINE. [Concomitant]
     Active Substance: FAMOTIDINE
     Dosage: 20 MG, 2X/DAY
     Route: 048
  5. DIGOXIN. [Concomitant]
     Active Substance: DIGOXIN
     Dosage: 0.125 MG, DAILY
     Route: 048
  6. ZOFRAN [Concomitant]
     Active Substance: ONDANSETRON HYDROCHLORIDE
     Dosage: 4 MG, UNK
     Route: 042
  7. DILAUDID [Concomitant]
     Active Substance: HYDROMORPHONE HYDROCHLORIDE
     Indication: PAIN
     Dosage: UNK
  8. LORAZEPAM. [Concomitant]
     Active Substance: LORAZEPAM
     Indication: AGITATION
     Dosage: 0.5 MG, AS NEEDED
  9. SOLU-MEDROL [Concomitant]
     Active Substance: METHYLPREDNISOLONE SODIUM SUCCINATE
     Dosage: 62.5 MG, 4X/DAY
     Route: 042
  10. DOCUSATE [Concomitant]
     Active Substance: DOCUSATE
     Dosage: 250 MG, 1X/DAY (AT BED TIME)
     Route: 048
  11. LANTUS [Concomitant]
     Active Substance: INSULIN GLARGINE
     Dosage: 15 IU, 1X/DAY (IN THE MORNING)
     Route: 058
  12. LASIX [Concomitant]
     Active Substance: FUROSEMIDE
     Dosage: 80 MG, 2X/DAY
     Route: 042
  13. MICAFUNGIN [Concomitant]
     Active Substance: MICAFUNGIN
     Dosage: 100 MG, DAILY
     Route: 042
  14. HUMALOG [Concomitant]
     Active Substance: INSULIN LISPRO
     Dosage: 8 IU, UNK (WITH MEALS)
  15. METOPROLOL [Concomitant]
     Active Substance: METOPROLOL
     Dosage: 50 MG, 3X/DAY
     Route: 048
  16. KEPPRA [Concomitant]
     Active Substance: LEVETIRACETAM
     Dosage: 1000 MG, 2X/DAY
     Route: 048
  17. PAXIL [Concomitant]
     Active Substance: PAROXETINE HYDROCHLORIDE
     Dosage: 30 MG, 1X/DAY
     Route: 048
  18. ARGATROBAN. [Suspect]
     Active Substance: ARGATROBAN
     Dosage: 5.1 MG PER HOUR
  19. DILTIAZEM [Concomitant]
     Active Substance: DILTIAZEM
     Dosage: 90 MG, 4X/DAY
     Route: 048
  20. ARGATROBAN. [Suspect]
     Active Substance: ARGATROBAN
     Dosage: 6.3 MG PER HOUR
     Dates: end: 20150119
  21. DUO-NEB [Concomitant]
     Dosage: UNK

REACTIONS (1)
  - International normalised ratio increased [Unknown]

NARRATIVE: CASE EVENT DATE: 20150119
